FAERS Safety Report 6458604-0 (Version None)
Quarter: 2009Q4

REPORT INFORMATION
  Report Type: 
  Country: None (occurrence: None)
  Receive Date: 20091126
  Receipt Date: 20091120
  Transmission Date: 20100525
  Serious: Yes (Hospitalization, Other)
  Sender: FDA-Public Use
  Company Number: FR-BRISTOL-MYERS SQUIBB COMPANY-14841134

PATIENT
  Age: 53 Year
  Sex: Male

DRUGS (12)
  1. SPRYCEL [Suspect]
     Indication: ACUTE LYMPHOCYTIC LEUKAEMIA
     Route: 048
     Dates: start: 20090728, end: 20090816
  2. ENDOXAN [Suspect]
     Indication: ACUTE LYMPHOCYTIC LEUKAEMIA
     Dosage: RECD 300 MG/M2 I.E. 520 MG/L2 HOURS FROM DAY 1 TO DAY 3 IN SEP-2009.
     Route: 042
     Dates: start: 20090728, end: 20090730
  3. DOXORUBICIN HCL [Suspect]
     Dates: start: 20090731
  4. AMIKLIN [Suspect]
     Dates: start: 20090814
  5. ONCOVIN [Suspect]
     Indication: ACUTE LYMPHOCYTIC LEUKAEMIA
     Dosage: VINCRISTINE 0.1%
     Route: 042
     Dates: start: 20090807
  6. GRANOCYTE [Suspect]
     Indication: ACUTE LYMPHOCYTIC LEUKAEMIA
     Route: 042
     Dates: start: 20090813, end: 20090819
  7. METHOTREXATE [Suspect]
     Indication: ACUTE LYMPHOCYTIC LEUKAEMIA
     Dosage: 1.7G IV ON DAY 1 IN SEP-2009.15 MG ON DAY 1 (AS PROPHYLACTIC LUMBAR PUNCTURE).
     Route: 037
     Dates: start: 20090729
  8. DEXAMETHASONE TAB [Suspect]
     Dosage: 28JUL09-31JUL09,07AUG09-11AUG09
     Dates: start: 20090728
  9. DEPO-MEDROL [Suspect]
     Dosage: 40 MG ON DAY 1 (AS PROPHYLACTIC LUMBAR PUNCTURE) IN SEP-09.
     Route: 037
     Dates: start: 20090729
  10. ARACYTINE [Suspect]
     Indication: ACUTE LYMPHOCYTIC LEUKAEMIA
     Dosage: 5.1 G 2/D ON DAY 2 +3 IN SEP-2009. 40 MG ON DAY 1 (AS PROPHYLACTIC LUMBAR PUNCTURE).
     Dates: start: 20090729
  11. TIENAM [Concomitant]
     Dates: start: 20090814
  12. ROVAMYCINE [Concomitant]
     Dates: start: 20090819, end: 20090825

REACTIONS (9)
  - DIARRHOEA [None]
  - FEBRILE BONE MARROW APLASIA [None]
  - FUNGAL INFECTION [None]
  - HEPATOMEGALY [None]
  - INTERSTITIAL LUNG DISEASE [None]
  - OEDEMA PERIPHERAL [None]
  - PERICARDITIS [None]
  - PLEURAL EFFUSION [None]
  - TOXIC SKIN ERUPTION [None]
